FAERS Safety Report 22523673 (Version 6)
Quarter: 2023Q4

REPORT INFORMATION
  Report Type: Report from Study
  Country: MX (occurrence: MX)
  Receive Date: 20230606
  Receipt Date: 20231010
  Transmission Date: 20240110
  Serious: Yes (Hospitalization, Other)
  Sender: FDA-Public Use
  Company Number: MX-002147023-NVSC2023MX127181

PATIENT
  Sex: Male
  Weight: 64 kg

DRUGS (20)
  1. MYFORTIC [Suspect]
     Active Substance: MYCOPHENOLATE SODIUM
     Indication: Prophylaxis against transplant rejection
     Dosage: 2 DOSAGE FORM, BID (500MG) (EVERY 12 HOURS)
     Route: 048
     Dates: start: 201802
  2. MYFORTIC [Suspect]
     Active Substance: MYCOPHENOLATE SODIUM
     Dosage: 360 MG, BID
     Route: 048
     Dates: start: 2019, end: 202204
  3. MYFORTIC [Suspect]
     Active Substance: MYCOPHENOLATE SODIUM
     Dosage: 3 DOSAGE FORM, BID (180MG) (EVERY 12 HOURS)
     Route: 048
     Dates: start: 20230210
  4. MYFORTIC [Suspect]
     Active Substance: MYCOPHENOLATE SODIUM
     Dosage: 180 MG (DOSE ADJUSTING)
     Route: 065
  5. MYFORTIC [Suspect]
     Active Substance: MYCOPHENOLATE SODIUM
     Dosage: UNK
     Route: 065
  6. MYFORTIC [Suspect]
     Active Substance: MYCOPHENOLATE SODIUM
     Dosage: 180 MG, BID
     Route: 048
     Dates: start: 202306, end: 20230928
  7. TACROLIMUS [Concomitant]
     Active Substance: TACROLIMUS
     Indication: Prophylaxis against transplant rejection
     Dosage: 4 DOSAGE FORM OF 1 MG, BID (EVERY 12 HOURS)
     Route: 048
     Dates: start: 201802, end: 202210
  8. TACROLIMUS [Concomitant]
     Active Substance: TACROLIMUS
     Dosage: 12 DOSAGE FORM, QD ( 12 CAPSULES A DAY)
     Route: 065
     Dates: start: 202302
  9. TACROLIMUS [Concomitant]
     Active Substance: TACROLIMUS
     Dosage: 10 DOSAGE FORM, QD
     Route: 065
  10. TACROLIMUS [Concomitant]
     Active Substance: TACROLIMUS
     Dosage: 6 DOSAGE FORM, BID (O 3 IN THE MORNING AND 3 AT NIGHT)
     Route: 065
  11. TACROLIMUS [Concomitant]
     Active Substance: TACROLIMUS
     Dosage: 10 DOSAGE FORM, BID (5 IN THE MORNING AND 5 AT NIGHT)
     Route: 065
     Dates: start: 20230210, end: 20230222
  12. TACROLIMUS [Concomitant]
     Active Substance: TACROLIMUS
     Dosage: 4 DOSAGE FORM, BID (EVERY 12 HOURS)
     Route: 065
  13. PREDNISONE [Concomitant]
     Active Substance: PREDNISONE
     Indication: Prophylaxis against transplant rejection
     Dosage: 2 DOSAGE FORM OF 5 MG, QD
     Route: 048
     Dates: start: 201802
  14. PREDNISONE [Concomitant]
     Active Substance: PREDNISONE
     Dosage: 1 DOSAGE FORM OF 50 MG, QW
     Route: 065
     Dates: start: 201907
  15. PREDNISONE [Concomitant]
     Active Substance: PREDNISONE
     Dosage: 0.5 DOSAGE FORM, QW (25MG)
     Route: 065
  16. PREDNISONE [Concomitant]
     Active Substance: PREDNISONE
     Dosage: 20 MG
     Route: 065
  17. PREDNISONE [Concomitant]
     Active Substance: PREDNISONE
     Dosage: 10 MG
     Route: 065
  18. PREDNISONE [Concomitant]
     Active Substance: PREDNISONE
     Dosage: 15 MG
     Route: 065
  19. PREDNISONE [Concomitant]
     Active Substance: PREDNISONE
     Dosage: 5 MG, QD
     Route: 048
     Dates: start: 201908
  20. SIROLIMUS [Concomitant]
     Active Substance: SIROLIMUS
     Indication: Prophylaxis against transplant rejection
     Dosage: UNK
     Route: 065
     Dates: start: 202210, end: 202302

REACTIONS (9)
  - Blood bicarbonate decreased [Unknown]
  - Fatigue [Unknown]
  - BK virus infection [Not Recovered/Not Resolved]
  - Blood magnesium decreased [Unknown]
  - Diarrhoea [Unknown]
  - Kidney fibrosis [Unknown]
  - Kidney transplant rejection [Recovering/Resolving]
  - Vomiting [Unknown]
  - Product use issue [Unknown]

NARRATIVE: CASE EVENT DATE: 20220101
